FAERS Safety Report 7756696-X (Version None)
Quarter: 2011Q3

REPORT INFORMATION
  Report Type: 
  Country: None (occurrence: None)
  Receive Date: 20110915
  Receipt Date: 20110915
  Transmission Date: 20111222
  Serious: Yes (Other)
  Sender: FDA-Public Use
  Company Number: None

PATIENT
  Sex: Male
  Weight: 88.905 kg

DRUGS (1)
  1. LOSARTAN POTASSIUM [Suspect]
     Indication: BLOOD PRESSURE INCREASED
     Dates: start: 20110704, end: 20110707

REACTIONS (2)
  - PRODUCT SUBSTITUTION ISSUE [None]
  - MYALGIA [None]
